FAERS Safety Report 5493534-2 (Version None)
Quarter: 2007Q4

REPORT INFORMATION
  Report Type: 
  Country: None (occurrence: None)
  Receive Date: 20071023
  Receipt Date: 20071010
  Transmission Date: 20080405
  Serious: Yes (Hospitalization, Other)
  Sender: FDA-Public Use
  Company Number: CA-SHR-CA-2005-017720

PATIENT
  Sex: Female
  Weight: 2.721 kg

DRUGS (1)
  1. BETASERON [Suspect]
     Indication: RELAPSING-REMITTING MULTIPLE SCLEROSIS
     Dosage: 8 MIU, EVERY 2D
     Dates: start: 19960101, end: 20040401

REACTIONS (3)
  - CONVULSION NEONATAL [None]
  - DRUG EXPOSURE BEFORE PREGNANCY [None]
  - TREMOR [None]
